FAERS Safety Report 8190441-1 (Version None)
Quarter: 2012Q1

REPORT INFORMATION
  Report Type: 
  Country: None (occurrence: None)
  Receive Date: 20120307
  Receipt Date: 20120305
  Transmission Date: 20120608
  Serious: Yes (Death, Other)
  Sender: FDA-Public Use
  Company Number: CO-PFIZER INC-2012059492

PATIENT
  Sex: Male

DRUGS (4)
  1. METOPROLOL TARTRATE [Concomitant]
     Dosage: 50MG, DAILY
     Route: 048
  2. AMLODIPINE BESILATE [Concomitant]
     Dosage: 5MG, DAILY
     Route: 048
  3. LOSARTAN [Concomitant]
     Dosage: 50MG, DAILY
     Route: 048
  4. LIPITOR [Suspect]
     Indication: DYSLIPIDAEMIA
     Dosage: 20MG, DAILY
     Route: 048
     Dates: start: 20100913

REACTIONS (1)
  - DEATH [None]
